FAERS Safety Report 6681820-X (Version None)
Quarter: 2010Q2

REPORT INFORMATION
  Report Type: 
  Country: None (occurrence: None)
  Receive Date: 20100414
  Receipt Date: 20100401
  Transmission Date: 20101027
  Serious: Yes (Other)
  Sender: FDA-Public Use
  Company Number: PHEH2006US05814

PATIENT
  Sex: Male
  Weight: 87.074 kg

DRUGS (15)
  1. ZOMETA [Suspect]
     Indication: METASTASES TO BONE
     Dosage: Q MONTH
     Dates: end: 20060101
  2. CHEMOTHERAPEUTICS,OTHER [Concomitant]
     Dates: start: 20041201, end: 20050901
  3. ZOLADEX [Concomitant]
     Dosage: Q3MOS; THEN Q4MOS
  4. PENICILLIN NOS [Concomitant]
     Dosage: 500 UNK, 4 X DAY
  5. VITAMINS NOS [Concomitant]
  6. CRESTOR [Concomitant]
     Dosage: 5 MG, QOD
  7. OXYCODONE [Concomitant]
     Dosage: 5/325
  8. CALCIUM [Concomitant]
  9. MEGESTROL ACETATE [Concomitant]
     Dosage: 20 MG, DAILY
  10. ACETYLSALICYLIC ACID [Concomitant]
     Dosage: DAILY
  11. CASODEX [Concomitant]
     Dosage: 50 UNK, UNK
  12. PERCOCET [Concomitant]
  13. FLOMAX [Concomitant]
     Dosage: 0.4 MG, UNK
  14. ACETAMINOPHEN AND HYDROCODONE BITARTRATE [Concomitant]
     Dosage: UNK
  15. HORMONES NOS [Concomitant]

REACTIONS (33)
  - ABSCESS JAW [None]
  - BONE DENSITY DECREASED [None]
  - BONE DISORDER [None]
  - DENTAL CARIES [None]
  - GINGIVAL DISORDER [None]
  - GINGIVAL PAIN [None]
  - HAEMORRHAGE [None]
  - HYPOAESTHESIA ORAL [None]
  - HYPOPHAGIA [None]
  - IMPAIRED HEALING [None]
  - INFECTION [None]
  - INSOMNIA [None]
  - JAW OPERATION [None]
  - LOOSE TOOTH [None]
  - METASTASES TO BONE [None]
  - METASTASES TO LYMPH NODES [None]
  - OEDEMA [None]
  - OROPHARYNGEAL PLAQUE [None]
  - OSTEOMYELITIS [None]
  - OSTEONECROSIS [None]
  - OSTEOSYNTHESIS [None]
  - PAIN IN JAW [None]
  - PERIODONTAL DISEASE [None]
  - PERIODONTITIS [None]
  - POOR PERSONAL HYGIENE [None]
  - PRIMARY SEQUESTRUM [None]
  - PROSTATIC SPECIFIC ANTIGEN INCREASED [None]
  - PURULENT DISCHARGE [None]
  - RADIOTHERAPY [None]
  - TOOTH DISORDER [None]
  - TOOTH EXTRACTION [None]
  - URINARY RETENTION [None]
  - WEIGHT DECREASED [None]
